FAERS Safety Report 6354242-9 (Version None)
Quarter: 2009Q3

REPORT INFORMATION
  Report Type: 
  Country: None (occurrence: None)
  Receive Date: 20090914
  Receipt Date: 20090909
  Transmission Date: 20100115
  Serious: Yes (Other)
  Sender: FDA-Public Use
  Company Number: US-ASTRAZENECA-2009UW12920

PATIENT
  Age: 47 Year
  Sex: Female

DRUGS (4)
  1. SEROQUEL [Suspect]
     Indication: DEPRESSION
     Dosage: 100-300 MG
     Route: 048
     Dates: start: 20001101
  2. SEROQUEL [Suspect]
     Indication: PSYCHOTIC DISORDER
     Dosage: 100-300 MG
     Route: 048
     Dates: start: 20001101
  3. PROZAC [Concomitant]
     Dates: start: 20000101, end: 20010101
  4. XANAX [Concomitant]
     Dates: start: 20060101

REACTIONS (4)
  - BLOOD CHOLESTEROL INCREASED [None]
  - GALLBLADDER DISORDER [None]
  - THYROID DISORDER [None]
  - TYPE 2 DIABETES MELLITUS [None]
